FAERS Safety Report 9513819 (Version 1)
Quarter: 2013Q3

REPORT INFORMATION
  Report Type: Spontaneous
  Country: US (occurrence: US)
  Receive Date: 20130910
  Receipt Date: 20130910
  Transmission Date: 20140515
  Serious: No
  Sender: FDA-Public Use
  Company Number: US-PFIZER INC-2013256521

PATIENT
  Sex: Female
  Weight: 58.5 kg

DRUGS (6)
  1. EFFEXOR [Suspect]
     Indication: DEPRESSION
     Dosage: 150 MG, 2X/DAY
     Dates: start: 1998
  2. EFFEXOR [Suspect]
     Dosage: UNK
     Dates: end: 200305
  3. ZOFRAN [Concomitant]
     Indication: GASTROINTESTINAL DISORDER
     Dosage: 4 MG, EVERY 8 HOURS
  4. PHENERGAN [Concomitant]
     Indication: GASTROINTESTINAL DISORDER
     Dosage: 25 MG, EVERY 4 HRS
  5. PROTONIX [Concomitant]
     Dosage: UNK
  6. PREMPRO [Concomitant]
     Dosage: UNK

REACTIONS (5)
  - Drug withdrawal syndrome [Unknown]
  - Pain [Unknown]
  - Hypoaesthesia [Unknown]
  - Activities of daily living impaired [Unknown]
  - Nervous system disorder [Unknown]
